FAERS Safety Report 18623616 (Version 1)
Quarter: 2020Q4

REPORT INFORMATION
  Report Type: Spontaneous
  Country: FR (occurrence: FR)
  Receive Date: 20201216
  Receipt Date: 20201216
  Transmission Date: 20210114
  Serious: Yes (Hospitalization)
  Sender: FDA-Public Use
  Company Number: FR-MYLANLABS-2020M1101486

PATIENT
  Age: 72 Year
  Sex: Female

DRUGS (2)
  1. LEXOMIL [Suspect]
     Active Substance: BROMAZEPAM
     Indication: PRODUCT USED FOR UNKNOWN INDICATION
     Dosage: 180 MILLIGRAM, TOTAL
     Route: 048
     Dates: start: 20201016, end: 20201016
  2. LAMOTRIGINE. [Suspect]
     Active Substance: LAMOTRIGINE
     Indication: PRODUCT USED FOR UNKNOWN INDICATION
     Dosage: 2000 MILLIGRAM, TOTAL
     Route: 048
     Dates: start: 20201016, end: 20201016

REACTIONS (4)
  - Sedation [Recovered/Resolved]
  - Poisoning deliberate [Recovered/Resolved]
  - Intentional overdose [Unknown]
  - Hypotension [Recovered/Resolved]

NARRATIVE: CASE EVENT DATE: 20201016
